FAERS Safety Report 16118169 (Version 1)
Quarter: 2019Q1

REPORT INFORMATION
  Report Type: Spontaneous
  Country: US (occurrence: US)
  Receive Date: 20190326
  Receipt Date: 20190326
  Transmission Date: 20190418
  Serious: No
  Sender: FDA-Public Use
  Company Number: US-PFIZER INC-2019122241

PATIENT
  Age: 54 Year
  Sex: Female
  Weight: 72.56 kg

DRUGS (3)
  1. VERAPAMIL [Concomitant]
     Active Substance: VERAPAMIL HYDROCHLORIDE
     Indication: HYPERTENSION
     Dosage: 240 MG, 1X/DAY
  2. GABAPENTIN. [Suspect]
     Active Substance: GABAPENTIN
     Indication: FACIAL PAIN
  3. GABAPENTIN. [Suspect]
     Active Substance: GABAPENTIN
     Indication: HEADACHE
     Dosage: 5 ML, DAILY (1.75ML IN THE MORNING AND AFTERNOON, AND 1.5ML AT NIGHT BY MOUTH; STRENGTH: 250 MG/5ML)
     Route: 048
     Dates: start: 20150404

REACTIONS (2)
  - Product use in unapproved indication [Unknown]
  - Drug withdrawal headache [Unknown]

NARRATIVE: CASE EVENT DATE: 20150404
